FAERS Safety Report 8186754 (Version 3)
Quarter: 2012Q4

REPORT INFORMATION
  Report Type: 
  Country: US (occurrence: US)
  Receive Date: 20111018
  Receipt Date: 20121022
  Transmission Date: 20130627
  Serious: Yes (Hospitalization)
  Sender: FDA-Public Use
  Company Number: US-ASTRAZENECA-2011SE34259

PATIENT
  Age: 56 Year
  Sex: Female

DRUGS (3)
  1. SYMBICORT PMDI [Suspect]
     Route: 055
  2. SPIRIVA [Suspect]
     Route: 065
  3. ADVAIR [Suspect]
     Route: 065

REACTIONS (6)
  - Pneumonia [Unknown]
  - Bronchopneumonia [Unknown]
  - Sinusitis [Unknown]
  - Malaise [Unknown]
  - Urticaria [Unknown]
  - Drug dose omission [Unknown]
